FAERS Safety Report 17115653 (Version 2)
Quarter: 2020Q1

REPORT INFORMATION
  Report Type: Report from Study
  Country: DE (occurrence: DE)
  Receive Date: 20191205
  Receipt Date: 20200110
  Transmission Date: 20200409
  Serious: Yes (Hospitalization, Other)
  Sender: FDA-Public Use
  Company Number: NVSC2019DE058212

PATIENT
  Age: 59 Year
  Sex: Female
  Weight: 77 kg

DRUGS (13)
  1. ATORVASTATIN [Concomitant]
     Active Substance: ATORVASTATIN
     Indication: HYPERCHOLESTEROLAEMIA
     Dosage: UNK
     Route: 065
     Dates: start: 201708
  2. RIVAROXABAN [Concomitant]
     Active Substance: RIVAROXABAN
     Indication: PROPHYLAXIS
     Route: 065
  3. AMITRIPTYLIN [Concomitant]
     Active Substance: AMITRIPTYLINE
     Indication: PRODUCT USED FOR UNKNOWN INDICATION
     Dosage: UNK
     Route: 065
     Dates: start: 20190618
  4. LETROZOLE. [Suspect]
     Active Substance: LETROZOLE
     Indication: BREAST CANCER
     Dosage: UNK
     Route: 065
     Dates: start: 20190118, end: 20190318
  5. LETROZOLE. [Suspect]
     Active Substance: LETROZOLE
     Dosage: 2.5 MG, QD
     Route: 048
     Dates: start: 20190319
  6. ABEMACICLIB [Suspect]
     Active Substance: ABEMACICLIB
     Indication: BREAST CANCER
     Dosage: 150 MG, BID
     Route: 048
     Dates: start: 20190319, end: 20190422
  7. L-THYROX [Concomitant]
     Active Substance: LEVOTHYROXINE SODIUM
     Indication: HYPOTHYROIDISM
     Dosage: UNK
     Route: 065
     Dates: start: 2009
  8. ZOPLICONE [Concomitant]
     Active Substance: ZOPICLONE
     Indication: SLEEP DISORDER
     Dosage: UNK
     Route: 065
     Dates: start: 201807
  9. XARELTO [Concomitant]
     Active Substance: RIVAROXABAN
     Indication: PRODUCT USED FOR UNKNOWN INDICATION
     Dosage: UNK
     Route: 065
     Dates: start: 201812
  10. IBUPROFEN. [Concomitant]
     Active Substance: IBUPROFEN
     Indication: MASTITIS
     Dosage: UNK
     Route: 065
     Dates: start: 20190313
  11. HEPARIN [Concomitant]
     Active Substance: HEPARIN SODIUM
     Indication: MASTITIS
     Dosage: UNK
     Route: 065
     Dates: start: 20190313
  12. EXEMESTANE. [Suspect]
     Active Substance: EXEMESTANE
     Indication: BREAST CANCER
     Dosage: 25 MG, QD
     Route: 048
     Dates: start: 20190728
  13. CANNABIDIOL [Concomitant]
     Active Substance: CANNABIDIOL
     Indication: PROPHYLAXIS
     Dosage: UNK
     Route: 065
     Dates: start: 20190920

REACTIONS (8)
  - Abdominal pain upper [Recovered/Resolved]
  - Abdominal pain [Recovered/Resolved]
  - Renal cyst [Unknown]
  - Gallbladder adenoma [Unknown]
  - Diarrhoea [Recovered/Resolved]
  - Nausea [Unknown]
  - Diarrhoea haemorrhagic [Recovered/Resolved]
  - Colitis [Recovered/Resolved]

NARRATIVE: CASE EVENT DATE: 20190324
